FAERS Safety Report 17796326 (Version 9)
Quarter: 2021Q3

REPORT INFORMATION
  Report Type: Spontaneous
  Country: US (occurrence: US)
  Receive Date: 20200517
  Receipt Date: 20210917
  Transmission Date: 20211014
  Serious: Yes (Hospitalization, Other)
  Sender: FDA-Public Use
  Company Number: US-ROCHE-2596398

PATIENT
  Age: 62 Year
  Sex: Female
  Weight: 44.49 kg

DRUGS (29)
  1. RITUXAN [Suspect]
     Active Substance: RITUXIMAB
     Indication: RHEUMATOID ARTHRITIS
     Dosage: ONGOING :YES PER COURSE OF TREATMENT. HAS HAD TWO COURSES?07/AUG/2019
     Route: 042
  2. NITROSTAT [Concomitant]
     Active Substance: NITROGLYCERIN
     Indication: BLOOD PRESSURE MEASUREMENT
  3. BETAXOLOL. [Concomitant]
     Active Substance: BETAXOLOL
     Indication: HYPERTENSION
     Dosage: ONGOING: YES
  4. RITUXAN [Suspect]
     Active Substance: RITUXIMAB
     Indication: OPTIC NEURITIS
     Route: 042
     Dates: start: 20200429
  5. RITUXAN [Suspect]
     Active Substance: RITUXIMAB
     Dosage: EVERY 6 MONTHS; ONGOING: UNKNOWN
     Route: 042
  6. KEPPRA [Concomitant]
     Active Substance: LEVETIRACETAM
     Route: 048
  7. ONFI [Concomitant]
     Active Substance: CLOBAZAM
     Indication: EPILEPSY
  8. IMURAN [Concomitant]
     Active Substance: AZATHIOPRINE
     Indication: RHEUMATOID ARTHRITIS
     Route: 048
  9. PLAQUENIL [Concomitant]
     Active Substance: HYDROXYCHLOROQUINE SULFATE
  10. ACTEMRA [Suspect]
     Active Substance: TOCILIZUMAB
     Dosage: 20/MAY/2021, 17/JUN/2021, 30/JUL/2021
     Route: 042
     Dates: start: 20210422
  11. RANEXA [Concomitant]
     Active Substance: RANOLAZINE
     Dosage: FOR MICROVASCULAR ARTERIAL DISEASE IN HEART, ONGOING: YES
  12. CYCLOPHOSPHAMIDE. [Concomitant]
     Active Substance: CYCLOPHOSPHAMIDE
     Dates: start: 20201110
  13. RITUXAN [Suspect]
     Active Substance: RITUXIMAB
     Dosage: ONGOING: YES
     Route: 042
  14. PREMARIN [Concomitant]
     Active Substance: ESTROGENS, CONJUGATED
     Indication: VASCULITIS
     Dosage: ONGOING: YES FOR UTERINE WALL VASCULITIS
  15. KEPPRA [Concomitant]
     Active Substance: LEVETIRACETAM
     Indication: EPILEPSY
     Dosage: ONGOING: YES; 1500 IN THE AM, AND 2000 MG IN THE HS
  16. ACTEMRA [Suspect]
     Active Substance: TOCILIZUMAB
     Indication: RHEUMATOID ARTHRITIS
     Dosage: 4MG/KG
     Route: 042
     Dates: start: 20210208, end: 20210208
  17. LAMICTAL [Concomitant]
     Active Substance: LAMOTRIGINE
     Indication: EPILEPSY
     Dosage: ONGOING: YES
  18. RITUXAN [Suspect]
     Active Substance: RITUXIMAB
     Dosage: EVERY 6 MONTHS; ONGOING: YES
     Route: 042
  19. RITUXAN [Suspect]
     Active Substance: RITUXIMAB
     Dosage: ONGOING: YES
     Route: 042
     Dates: start: 20190724
  20. NIFEDIPINE. [Concomitant]
     Active Substance: NIFEDIPINE
  21. ISOSORBIDE. [Concomitant]
     Active Substance: ISOSORBIDE
     Indication: BLOOD PRESSURE MEASUREMENT
     Route: 048
     Dates: start: 202004
  22. METHOTREXATE. [Concomitant]
     Active Substance: METHOTREXATE
  23. SOLU?MEDROL [Concomitant]
     Active Substance: METHYLPREDNISOLONE SODIUM SUCCINATE
     Dosage: FOR 3 DAYS
  24. MYCOPHENOLATE MOFETIL. [Suspect]
     Active Substance: MYCOPHENOLATE MOFETIL
     Indication: PRODUCT USED FOR UNKNOWN INDICATION
     Route: 065
  25. CARDIZEM [Concomitant]
     Active Substance: DILTIAZEM HYDROCHLORIDE
     Indication: BLOOD PRESSURE MEASUREMENT
     Route: 048
     Dates: end: 202004
  26. CYTOXAN [Suspect]
     Active Substance: CYCLOPHOSPHAMIDE
     Indication: PRODUCT USED FOR UNKNOWN INDICATION
     Route: 065
  27. LANSOPRAZOLE. [Concomitant]
     Active Substance: LANSOPRAZOLE
     Indication: ABDOMINAL DISCOMFORT
     Dosage: ONGOING: YES
  28. AZATHIOPRINE. [Concomitant]
     Active Substance: AZATHIOPRINE
     Indication: RHEUMATOID ARTHRITIS
     Dosage: ONGOING: YES
  29. HYDRALAZINE [Concomitant]
     Active Substance: HYDRALAZINE HYDROCHLORIDE
     Indication: BLOOD PRESSURE MEASUREMENT
     Route: 048
     Dates: end: 202004

REACTIONS (36)
  - Feeling abnormal [Unknown]
  - Joint dislocation [Not Recovered/Not Resolved]
  - Throat irritation [Unknown]
  - Tachycardia [Unknown]
  - Dizziness [Unknown]
  - B-lymphocyte count decreased [Unknown]
  - Visual impairment [Not Recovered/Not Resolved]
  - Plague [Unknown]
  - Finger amputation [Unknown]
  - Vomiting [Recovered/Resolved]
  - Mass [Not Recovered/Not Resolved]
  - Hypotension [Not Recovered/Not Resolved]
  - Blood pressure measurement [Unknown]
  - Fall [Unknown]
  - Focal dyscognitive seizures [Recovered/Resolved]
  - Nausea [Not Recovered/Not Resolved]
  - Intraductal papillary mucinous neoplasm [Not Recovered/Not Resolved]
  - Hypertension [Unknown]
  - Treatment failure [Unknown]
  - Ill-defined disorder [Unknown]
  - Muscular weakness [Unknown]
  - Drug ineffective [Unknown]
  - Off label use [Unknown]
  - Neutrophil count [Unknown]
  - Eye pain [Recovered/Resolved]
  - Seizure [Recovered/Resolved]
  - Dysphagia [Unknown]
  - Dizziness [Recovered/Resolved]
  - Rash [Unknown]
  - Cytokine release syndrome [Recovered/Resolved]
  - Abdominal pain lower [Recovered/Resolved]
  - Gait disturbance [Unknown]
  - Facial bones fracture [Not Recovered/Not Resolved]
  - C-reactive protein increased [Unknown]
  - White blood cell disorder [Unknown]
  - White blood cell count decreased [Unknown]

NARRATIVE: CASE EVENT DATE: 20191018
